FAERS Safety Report 5027252-1 (Version None)
Quarter: 2006Q2

REPORT INFORMATION
  Report Type: 
  Country: None (occurrence: None)
  Receive Date: 20060501
  Receipt Date: 20051229
  Transmission Date: 20061013
  Serious: No
  Sender: FDA-Public Use
  Company Number: 2006PV006534

PATIENT
  Sex: Male

DRUGS (1)
  1. SYMLIN [Suspect]
     Dosage: SC
     Route: 058
     Dates: start: 20050101

REACTIONS (1)
  - OEDEMA [None]
